FAERS Safety Report 16033193 (Version 1)
Quarter: 2019Q1

REPORT INFORMATION
  Report Type: Spontaneous
  Country: AU (occurrence: AU)
  Receive Date: 20190305
  Receipt Date: 20190305
  Transmission Date: 20190418
  Serious: Yes (Other)
  Sender: FDA-Public Use
  Company Number: AU-ROCHE-2277201

PATIENT
  Age: 54 Year
  Sex: Male
  Weight: 65 kg

DRUGS (3)
  1. METHOTREXATE. [Concomitant]
     Active Substance: METHOTREXATE
     Dosage: WEEKLY
     Route: 048
  2. PREDNISONE. [Concomitant]
     Active Substance: PREDNISONE
     Route: 065
  3. RITUXIMAB. [Suspect]
     Active Substance: RITUXIMAB
     Indication: MYOSITIS
     Dosage: 2 DOSES
     Route: 042
     Dates: start: 2018

REACTIONS (3)
  - Off label use [Unknown]
  - Intentional product use issue [Unknown]
  - Myositis [Unknown]
